FAERS Safety Report 13640379 (Version 1)
Quarter: 2017Q2

REPORT INFORMATION
  Report Type: Spontaneous
  Country: US (occurrence: US)
  Receive Date: 20170610
  Receipt Date: 20170610
  Transmission Date: 20170830
  Serious: No
  Sender: FDA-Public Use
  Company Number: PHEH2017US016482

PATIENT
  Age: 55 Year
  Sex: Male
  Weight: 92.53 kg

DRUGS (5)
  1. RAPAMUNE [Suspect]
     Active Substance: SIROLIMUS
     Indication: LIVER TRANSPLANT REJECTION
     Dosage: 2 DF, QD
     Route: 048
     Dates: start: 201703
  2. MYFORTIC [Concomitant]
     Active Substance: MYCOPHENOLATE SODIUM
     Indication: IMMUNOSUPPRESSION
     Dosage: 2 DF, BID
     Route: 065
     Dates: start: 20131203
  3. LOSARTAN. [Concomitant]
     Active Substance: LOSARTAN
     Indication: BLOOD PRESSURE MEASUREMENT
     Dosage: 1 MG, QD
     Route: 048
     Dates: start: 2015
  4. KEPPRA [Concomitant]
     Active Substance: LEVETIRACETAM
     Indication: SEIZURE
     Dosage: 250 MG, QD
     Route: 048
     Dates: start: 20130723
  5. NEORAL [Suspect]
     Active Substance: CYCLOSPORINE
     Indication: LIVER TRANSPLANT REJECTION
     Dosage: 100 MG, BID
     Route: 048
     Dates: start: 20131203

REACTIONS (11)
  - Pruritus [Recovered/Resolved]
  - Dyspnoea [Unknown]
  - Gastric disorder [Recovered/Resolved]
  - Liver disorder [Unknown]
  - Diarrhoea [Recovering/Resolving]
  - Mouth ulceration [Recovered/Resolved]
  - Sleep disorder [Recovered/Resolved]
  - Asthenia [Recovered/Resolved]
  - Lip ulceration [Recovered/Resolved]
  - Rash [Recovered/Resolved]
  - Decreased appetite [Recovered/Resolved]

NARRATIVE: CASE EVENT DATE: 201703
